FAERS Safety Report 4579148-7 (Version None)
Quarter: 2005Q1

REPORT INFORMATION
  Report Type: 
  Country: None (occurrence: None)
  Receive Date: 20050121
  Receipt Date: 20040722
  Transmission Date: 20050727
  Serious: Yes (Other)
  Sender: FDA-Public Use
  Company Number: STA-AE-04-MTX-322

PATIENT
  Age: 39 Year
  Sex: Female

DRUGS (6)
  1. METHOTREXATE [Suspect]
     Indication: RHEUMATOID ARTHRITIS
     Dosage: 10 MG 1X PER 1 WK, ORAL
     Route: 048
     Dates: start: 20001110, end: 20020612
  2. METHOTREXATE [Suspect]
     Indication: RHEUMATOID ARTHRITIS
     Dosage: 10 MG 1X PER 1 WK, ORAL
     Route: 048
     Dates: start: 20020701
  3. ARAVA [Suspect]
     Dosage: 20 MG 1X PER 1 DAY, ORAL
     Route: 048
     Dates: start: 20020401, end: 20020610
  4. ARAVA [Suspect]
     Dosage: 20 MG 1X PER 1 DAY, ORAL
     Route: 048
     Dates: start: 20020401, end: 20020612
  5. FOLIC ACID [Concomitant]
  6. ORUDIS [Concomitant]

REACTIONS (2)
  - HEPATIC ENZYME INCREASED [None]
  - HEPATIC FUNCTION ABNORMAL [None]
